FAERS Safety Report 19010703 (Version 1)
Quarter: 2021Q1

REPORT INFORMATION
  Report Type: Spontaneous
  Country: BR (occurrence: BR)
  Receive Date: 20210316
  Receipt Date: 20210316
  Transmission Date: 20210420
  Serious: Yes (Hospitalization, Other)
  Sender: FDA-Public Use
  Company Number: BR-ABBVIE-21P-020-3808973-00

PATIENT
  Age: 39 Year
  Sex: Male

DRUGS (10)
  1. RIVOTRIL [Suspect]
     Active Substance: CLONAZEPAM
     Indication: PRODUCT USED FOR UNKNOWN INDICATION
     Dosage: PRODUCT ADMINISTERED AT NIGHT. ; DAILY DOSE: 1 TABLET (2.5 MG)
     Route: 065
  2. DESVENLAFAXINE. [Suspect]
     Active Substance: DESVENLAFAXINE
     Indication: DEPRESSION
     Dosage: GENERIC DRUG USED BEFORE ELIFORE, STARTED ALMOST 2 YEARS AND IT WAS REPLACED BY ELIFORE.
     Route: 065
  3. COCAINE [Suspect]
     Active Substance: COCAINE
     Indication: PRODUCT USED FOR UNKNOWN INDICATION
     Route: 065
  4. ZOLPIDEM [Suspect]
     Active Substance: ZOLPIDEM TARTRATE
     Indication: PRODUCT USED FOR UNKNOWN INDICATION
     Dosage: PRODUCT ADMINISTERED AT NIGHT.; DAILY DOSE: 10 MILLIGRAM
     Route: 065
  5. AKINETON [Suspect]
     Active Substance: BIPERIDEN HYDROCHLORIDE
     Indication: MUSCULOSKELETAL STIFFNESS
     Dosage: PRODUCT ADMINISTERED IN THE MORNING. DAILY DOSE: 2 MG (1 TABLET)
     Route: 065
  6. DEPAKOTE [Suspect]
     Active Substance: DIVALPROEX SODIUM
     Indication: PRODUCT USED FOR UNKNOWN INDICATION
     Dosage: PRODUCT ADMINISTERED AT NIGHT.; DAILY DOSE: 2 TABLETS
     Route: 048
  7. AKINETON [Suspect]
     Active Substance: BIPERIDEN HYDROCHLORIDE
     Indication: GAIT DISTURBANCE
  8. HALOPERIDOL. [Suspect]
     Active Substance: HALOPERIDOL
     Indication: PRODUCT USED FOR UNKNOWN INDICATION
     Dosage: PRODUCT ADMINISTERED AT NIGHT. ; DAILY DOSE: 1 TABLET (5MG)
     Route: 065
  9. RIVOTRIL [Suspect]
     Active Substance: CLONAZEPAM
     Dosage: ADMINISTERED IF PATIENT COULD NOT SLEEP AFTER RIVOTRIL 2.5MG WAS ADMINISTERED
     Route: 065
  10. QUETIAPINE. [Suspect]
     Active Substance: QUETIAPINE
     Indication: PRODUCT USED FOR UNKNOWN INDICATION
     Dosage: DAILY DOSE: 1 TABLET
     Route: 065

REACTIONS (8)
  - Depression [Not Recovered/Not Resolved]
  - Hepatitis [Not Recovered/Not Resolved]
  - Product residue present [Unknown]
  - Hepatic steatosis [Not Recovered/Not Resolved]
  - Gait disturbance [Not Recovered/Not Resolved]
  - Drug ineffective [Unknown]
  - Product quality issue [Unknown]
  - Musculoskeletal stiffness [Not Recovered/Not Resolved]
